FAERS Safety Report 6114962-8 (Version None)
Quarter: 2009Q1

REPORT INFORMATION
  Report Type: 
  Country: None (occurrence: None)
  Receive Date: 20090313
  Receipt Date: 20090305
  Transmission Date: 20090719
  Serious: Yes (Death)
  Sender: FDA-Public Use
  Company Number: VE-TEVA-187530ISR

PATIENT
  Sex: Male

DRUGS (3)
  1. BUDESONIDE [Suspect]
  2. OMALIZUMAB [Suspect]
     Indication: ASTHMA
     Dosage: 450MG MONTHLY(THE FIRST DOSE 300MG AND FIFTEEN DAYS LATER 150MG)
     Route: 058
  3. FORMOTEROL FUMARATE [Suspect]
     Indication: ASTHMA

REACTIONS (1)
  - RESPIRATORY ARREST [None]
